FAERS Safety Report 20422911 (Version 4)
Quarter: 2022Q1

REPORT INFORMATION
  Report Type: Spontaneous
  Country: TR (occurrence: TR)
  Receive Date: 20220203
  Receipt Date: 20220315
  Transmission Date: 20220423
  Serious: Yes (Other)
  Sender: FDA-Public Use
  Company Number: TR-PFIZER INC-202200153989

PATIENT
  Age: 45 Year
  Sex: Female

DRUGS (2)
  1. MEROPENEM [Suspect]
     Active Substance: MEROPENEM
     Indication: Abdominal infection
     Dosage: UNK
     Dates: end: 20211105
  2. TYGACIL [Suspect]
     Active Substance: TIGECYCLINE
     Indication: Abdominal infection
     Dosage: UNK

REACTIONS (9)
  - Acute kidney injury [Unknown]
  - Acinetobacter bacteraemia [Unknown]
  - Systemic candida [Unknown]
  - Renal haemorrhage [Unknown]
  - Intra-abdominal haemorrhage [Unknown]
  - Drug ineffective [Unknown]
  - Urinary tract infection [Unknown]
  - Wound infection [Unknown]
  - Purulent discharge [Unknown]

NARRATIVE: CASE EVENT DATE: 20210917
